FAERS Safety Report 9358687 (Version 4)
Quarter: 2014Q2

REPORT INFORMATION
  Report Type: Spontaneous
  Country: FR (occurrence: FR)
  Receive Date: 20130620
  Receipt Date: 20140520
  Transmission Date: 20141212
  Serious: Yes (Hospitalization)
  Sender: FDA-Public Use
  Company Number: FR-GLAXOSMITHKLINE-B0899376A

PATIENT
  Age: 10 Year
  Sex: Male
  Weight: 29 kg

DRUGS (9)
  1. ZOPHREN [Suspect]
     Indication: VOMITING
     Dosage: 4MG PER DAY
     Route: 042
     Dates: start: 20130504, end: 20130511
  2. FLAGYL [Suspect]
     Indication: EMPYEMA
     Route: 042
     Dates: start: 20130418, end: 20130511
  3. CEFOTAXIME [Suspect]
     Indication: MENINGITIS BACTERIAL
     Dosage: 2G FOUR TIMES PER DAY
     Route: 042
     Dates: start: 20130414
  4. KEPPRA [Suspect]
     Indication: PARTIAL SEIZURES
     Dates: start: 20130420
  5. NALBUPHINE [Suspect]
     Indication: ANALGESIC THERAPY
     Dosage: 4MG SIX TIMES PER DAY
     Route: 042
     Dates: start: 20130504, end: 20130511
  6. DOLIPRANE [Suspect]
     Indication: ANALGESIC THERAPY
     Dosage: 300MG TWICE PER DAY
     Route: 048
     Dates: end: 20130511
  7. VANCOMYCINE [Concomitant]
     Indication: MENINGITIS BACTERIAL
     Dosage: 100MG FOUR TIMES PER DAY
     Route: 042
     Dates: start: 20130414, end: 20130422
  8. DEXAMETHASONE [Concomitant]
     Dates: end: 20130504
  9. PERFALGAN [Concomitant]
     Indication: ANALGESIC THERAPY
     Dosage: 270MG SIX TIMES PER DAY
     Route: 042
     Dates: start: 20130414

REACTIONS (1)
  - Neutropenia [Recovered/Resolved]
